FAERS Safety Report 20337991 (Version 1)
Quarter: 2022Q1

REPORT INFORMATION
  Report Type: Spontaneous
  Country: US (occurrence: US)
  Receive Date: 20220115
  Receipt Date: 20220115
  Transmission Date: 20220423
  Serious: No
  Sender: FDA-Public Use
  Company Number: US-SANOFI-00927874

PATIENT
  Age: 69 Year
  Sex: Male

DRUGS (2)
  1. TOUJEO [Suspect]
     Active Substance: INSULIN GLARGINE
     Indication: Type 2 diabetes mellitus
     Dosage: 25 U, UNK
  2. TOUJEO [Suspect]
     Active Substance: INSULIN GLARGINE
     Dosage: 40 U, UNK

REACTIONS (2)
  - Product dose omission issue [Unknown]
  - Device issue [Unknown]
